FAERS Safety Report 14415899 (Version 1)
Quarter: 2018Q1

REPORT INFORMATION
  Report Type: Spontaneous
  Country: US (occurrence: US)
  Receive Date: 20180122
  Receipt Date: 20180122
  Transmission Date: 20180509
  Serious: Yes (Hospitalization)
  Sender: FDA-Public Use
  Company Number: US-ASTRAZENECA-2017SF23781

PATIENT
  Sex: Female

DRUGS (3)
  1. TUDORZA PRESSAIR [Suspect]
     Active Substance: ACLIDINIUM BROMIDE
     Indication: CHRONIC OBSTRUCTIVE PULMONARY DISEASE
     Dosage: 400 MCG, ONE INHALATION, DAILY
     Route: 055
  2. IPRATROPIUM/ALBUTEROL NEBULIZER [Concomitant]
     Indication: INHALATION THERAPY
     Dosage: UNKNOWN STRENGTH, AS NEEDED
  3. ADVAIR HFA [Concomitant]
     Active Substance: FLUTICASONE PROPIONATE\SALMETEROL XINAFOATE
     Indication: BRONCHIOLITIS

REACTIONS (4)
  - Fluid retention [Unknown]
  - Device issue [Unknown]
  - Cardiac failure congestive [Unknown]
  - Incorrect dose administered [Unknown]
